APPROVED DRUG PRODUCT: RENVELA
Active Ingredient: SEVELAMER CARBONATE
Strength: 800MG
Dosage Form/Route: TABLET;ORAL
Application: N022127 | Product #001 | TE Code: AB
Applicant: SANOFI GENZYME
Approved: Oct 19, 2007 | RLD: Yes | RS: Yes | Type: RX